FAERS Safety Report 14721123 (Version 1)
Quarter: 2018Q1

REPORT INFORMATION
  Report Type: Spontaneous
  Country: US (occurrence: US)
  Receive Date: 20180331
  Receipt Date: 20180331
  Transmission Date: 20180509
  Serious: Yes (Hospitalization)
  Sender: FDA-Public Use
  Company Number: None

PATIENT
  Age: 65 Year
  Sex: Male
  Weight: 90.7 kg

DRUGS (2)
  1. ETOPOSIDE (VP-16) [Suspect]
     Active Substance: ETOPOSIDE
     Dates: end: 20180309
  2. CARBOPLATIN. [Suspect]
     Active Substance: CARBOPLATIN
     Dates: end: 20180307

REACTIONS (7)
  - Neutropenia [None]
  - Oesophagitis [None]
  - Dysphagia [None]
  - Syncope [None]
  - Dehydration [None]
  - Lymphocyte count decreased [None]
  - Thrombocytopenia [None]

NARRATIVE: CASE EVENT DATE: 20180316
